FAERS Safety Report 4587409-0 (Version None)
Quarter: 2005Q1

REPORT INFORMATION
  Report Type: 
  Country: None (occurrence: None)
  Receive Date: 20050218
  Receipt Date: 20050209
  Transmission Date: 20050727
  Serious: Yes (Other)
  Sender: FDA-Public Use
  Company Number: US-JNJFOC-20041101262

PATIENT
  Sex: Female

DRUGS (9)
  1. REMICADE [Suspect]
     Route: 042
  2. ACIPHEX [Concomitant]
  3. VICODIN [Concomitant]
  4. VICODIN [Concomitant]
  5. TRAZODONE [Concomitant]
  6. ACTONEL [Concomitant]
  7. OXYBUTININ [Concomitant]
  8. ATARAX [Concomitant]
  9. VITAMIN D [Concomitant]

REACTIONS (1)
  - DERMATITIS PSORIASIFORM [None]
